FAERS Safety Report 5504535-X (Version None)
Quarter: 2007Q4

REPORT INFORMATION
  Report Type: 
  Country: None (occurrence: None)
  Receive Date: 20071030
  Receipt Date: 20071015
  Transmission Date: 20080405
  Serious: Yes (Disabling)
  Sender: FDA-Public Use
  Company Number: SU-2007-006014

PATIENT
  Sex: Female

DRUGS (7)
  1. OLMESARTAN MEDOXOMIL [Suspect]
     Indication: HYPERTENSION
     Dosage: 20 MG (20 MG,QD),PER ORAL
     Route: 048
     Dates: start: 20040101
  2. DIABINESE [Suspect]
     Indication: DIABETES MELLITUS
     Dosage: 500 MG (250 MG,BID),PER ORAL
     Route: 048
     Dates: start: 19960101, end: 20041130
  3. NORVASC [Suspect]
     Indication: DRUG USE FOR UNKNOWN INDICATION
     Dosage: 5 MG (5 MG,QD),PER ORAL
     Route: 048
     Dates: start: 20040101, end: 20060101
  4. CADUET [Suspect]
     Indication: HYPERTENSION
     Dosage: 10/5 MG (BID),PER ORAL
     Route: 048
     Dates: start: 20040101
  5. ALDACTONE [Suspect]
     Indication: HYPERTENSION
     Dosage: (QD), PER ORAL
     Route: 048
     Dates: start: 20040101
  6. CORISTINA D (ACETYSALICYLIC ACID, CAFFFEINE, PHENYLEPHRINE HYDROCHLORI [Suspect]
     Indication: DRUG USE FOR UNKNOWN INDICATION
  7. INSULIN (INSULIN) (-INJECTION) (INSULIN) [Concomitant]

REACTIONS (12)
  - ARTERIAL OCCLUSIVE DISEASE [None]
  - BLOOD GLUCOSE INCREASED [None]
  - DEPRESSION [None]
  - DIARRHOEA [None]
  - DRUG INEFFECTIVE [None]
  - HAEMATOMA [None]
  - ILL-DEFINED DISORDER [None]
  - IMPAIRED WORK ABILITY [None]
  - MYOCARDIAL INFARCTION [None]
  - OEDEMA [None]
  - PALPITATIONS [None]
  - PULMONARY OEDEMA [None]
